FAERS Safety Report 4504963-5 (Version None)
Quarter: 2004Q4

REPORT INFORMATION
  Report Type: 
  Country: None (occurrence: None)
  Receive Date: 20041020
  Receipt Date: 20040616
  Transmission Date: 20050328
  Serious: No
  Sender: FDA-Public Use
  Company Number: 2004-05-1871

PATIENT
  Age: 12 Year
  Sex: Female

DRUGS (1)
  1. CLARINEX [Suspect]
     Dosage: 5 MG ORAL
     Route: 048

REACTIONS (1)
  - SENSATION OF FOREIGN BODY [None]
